FAERS Safety Report 18936248 (Version 1)
Quarter: 2021Q1

REPORT INFORMATION
  Report Type: Report from Study
  Country: CA (occurrence: CA)
  Receive Date: 20210224
  Receipt Date: 20210224
  Transmission Date: 20210420
  Serious: Yes (Hospitalization, Other)
  Sender: FDA-Public Use
  Company Number: CA-SHIRE-CA202030200

PATIENT
  Age: 71 Year
  Sex: Female

DRUGS (2)
  1. GAMMAGARD LIQUID [Suspect]
     Active Substance: HUMAN IMMUNOGLOBULIN G
     Indication: PRIMARY IMMUNODEFICIENCY SYNDROME
     Dosage: 20 GRAM, 1X/WEEK
     Route: 065
     Dates: start: 20181009
  2. HIZENTRA [Concomitant]
     Active Substance: HUMAN IMMUNOGLOBULIN G
     Indication: PRODUCT USED FOR UNKNOWN INDICATION
     Dosage: 5 MILLILITER
     Route: 065
     Dates: end: 20181020

REACTIONS (5)
  - Pneumonia [Unknown]
  - Kidney infection [Unknown]
  - Urinary tract infection [Unknown]
  - Coma [Unknown]
  - Hospitalisation [Unknown]

NARRATIVE: CASE EVENT DATE: 20200830
